FAERS Safety Report 9457148 (Version 1)
Quarter: 2013Q3

REPORT INFORMATION
  Report Type: Spontaneous
  Country: US (occurrence: US)
  Receive Date: 20130814
  Receipt Date: 20130814
  Transmission Date: 20140515
  Serious: No
  Sender: FDA-Public Use
  Company Number: US-BIOGENIDEC-2013BI075034

PATIENT
  Age: 62 Year
  Sex: Male

DRUGS (8)
  1. TYSABRI [Suspect]
     Indication: MULTIPLE SCLEROSIS
     Route: 042
     Dates: start: 20090217
  2. BENADRYL [Concomitant]
     Indication: FEELING COLD
  3. BENADRYL [Concomitant]
     Indication: PYREXIA
  4. BENADRYL [Concomitant]
     Indication: COLD SWEAT
  5. BENADRYL [Concomitant]
     Indication: CHILLS
  6. BENADRYL [Concomitant]
     Indication: URTICARIA
  7. BENADRYL [Concomitant]
     Indication: DYSPNOEA
  8. BENADRYL [Concomitant]
     Indication: ADVERSE REACTION

REACTIONS (7)
  - Adverse reaction [Recovered/Resolved]
  - Cold sweat [Recovered/Resolved]
  - Feeling cold [Recovered/Resolved]
  - Dyspnoea [Recovered/Resolved]
  - Urticaria [Recovered/Resolved]
  - Chills [Recovered/Resolved]
  - Pyrexia [Recovered/Resolved]
